FAERS Safety Report 10624552 (Version 1)
Quarter: 2014Q4

REPORT INFORMATION
  Report Type: Spontaneous
  Country: US (occurrence: US)
  Receive Date: 20141203
  Receipt Date: 20141203
  Transmission Date: 20150529
  Serious: Yes (Hospitalization, Other)
  Sender: FDA-Public Use
  Company Number: US-GLAXOSMITHKLINE-US2014GSK030516

PATIENT
  Sex: Female

DRUGS (9)
  1. LIPITOR [Concomitant]
     Active Substance: ATORVASTATIN CALCIUM
  2. PROVENTIL [Concomitant]
     Active Substance: ALBUTEROL
  3. OXYGEN. [Concomitant]
     Active Substance: OXYGEN
  4. SYNTHROID [Concomitant]
     Active Substance: LEVOTHYROXINE SODIUM
  5. NEBULIZER (NAME UNKNOWN) [Concomitant]
  6. CPAP (CONTINUOUS POSITIVE AIRWAY PRESSURE) [Concomitant]
  7. ADVAIR DISKUS [Suspect]
     Active Substance: FLUTICASONE PROPIONATE\SALMETEROL XINAFOATE
     Indication: CHRONIC OBSTRUCTIVE PULMONARY DISEASE
     Dosage: 1 PUFF(S), BID
     Route: 055
     Dates: start: 2011
  8. CRESTOR [Concomitant]
     Active Substance: ROSUVASTATIN CALCIUM
  9. IPRATROPIUM [Concomitant]
     Active Substance: IPRATROPIUM

REACTIONS (12)
  - Intraocular lens implant [Recovering/Resolving]
  - Loss of consciousness [Unknown]
  - Pulmonary thrombosis [Recovered/Resolved]
  - Chronic obstructive pulmonary disease [Unknown]
  - Hypoaesthesia [Unknown]
  - Thrombosis [Recovered/Resolved]
  - Cerebrovascular accident [Recovered/Resolved]
  - Dyspnoea [Unknown]
  - Cerebral thrombosis [Recovered/Resolved]
  - Blindness transient [Recovered/Resolved]
  - Eye disorder [Not Recovered/Not Resolved]
  - Balance disorder [Not Recovered/Not Resolved]

NARRATIVE: CASE EVENT DATE: 2012
